FAERS Safety Report 24698258 (Version 1)
Quarter: 2024Q4

REPORT INFORMATION
  Report Type: Spontaneous
  Country: BR (occurrence: BR)
  Receive Date: 20241204
  Receipt Date: 20241204
  Transmission Date: 20250115
  Serious: Yes (Life-Threatening, Hospitalization, Disabling, Other)
  Sender: LUNDBECK
  Company Number: BR-SA-2024SA347654

PATIENT

DRUGS (3)
  1. SABRIL [Suspect]
     Active Substance: VIGABATRIN
     Indication: Infantile spasms
     Dosage: 500 MG
     Route: 048
     Dates: start: 2012
  2. SABRIL [Suspect]
     Active Substance: VIGABATRIN
     Dosage: 500 MG
     Route: 048
     Dates: start: 2012
  3. CANNABIS SATIVA FLOWERING TOP [Concomitant]
     Active Substance: CANNABIS SATIVA FLOWERING TOP
     Indication: Infantile spasms
     Dosage: UNK

REACTIONS (24)
  - Oxygen saturation decreased [Recovering/Resolving]
  - Paralysis [Recovering/Resolving]
  - Pneumonia aspiration [Recovering/Resolving]
  - Epilepsy [Recovering/Resolving]
  - Product contamination [Unknown]
  - Poor quality product administered [Unknown]
  - Dysphagia [Recovering/Resolving]
  - Condition aggravated [Recovering/Resolving]
  - Pain [Recovering/Resolving]
  - Asthenia [Recovering/Resolving]
  - Malnutrition [Recovering/Resolving]
  - Joint stiffness [Recovering/Resolving]
  - Cough [Recovering/Resolving]
  - Rhonchi [Recovering/Resolving]
  - Crepitations [Recovering/Resolving]
  - Pyrexia [Recovering/Resolving]
  - Reflux gastritis [Recovering/Resolving]
  - Dyspnoea [Recovering/Resolving]
  - Fatigue [Recovering/Resolving]
  - Shock [Unknown]
  - Fracture [Recovering/Resolving]
  - Anxiety [Unknown]
  - Salivary hypersecretion [Recovering/Resolving]
  - Nasal injury [Recovering/Resolving]

NARRATIVE: CASE EVENT DATE: 20220101
